FAERS Safety Report 19571982 (Version 1)
Quarter: 2021Q3

REPORT INFORMATION
  Report Type: Spontaneous
  Country: US (occurrence: US)
  Receive Date: 20210716
  Receipt Date: 20210716
  Transmission Date: 20211014
  Serious: Yes (Death)
  Sender: FDA-Public Use
  Company Number: US-ASTRAZENECA-2021A626130

PATIENT
  Age: 14 Year
  Sex: Female

DRUGS (1)
  1. QUETIAPINE. [Suspect]
     Active Substance: QUETIAPINE
     Route: 048

REACTIONS (6)
  - Toxicity to various agents [Fatal]
  - Exposure to violent event [Fatal]
  - Injury [Fatal]
  - Asphyxia [Fatal]
  - Pulmonary oedema [Fatal]
  - Overdose [Fatal]
